FAERS Safety Report 11680425 (Version 3)
Quarter: 2015Q4

REPORT INFORMATION
  Report Type: Spontaneous
  Country: US (occurrence: US)
  Receive Date: 20151027
  Receipt Date: 20151110
  Transmission Date: 20160304
  Serious: No
  Sender: FDA-Public Use
  Company Number: US-ELI_LILLY_AND_COMPANY-US201008007884

PATIENT
  Age: 61 Year
  Sex: Female

DRUGS (4)
  1. FORTEO [Suspect]
     Active Substance: TERIPARATIDE
     Dosage: 20 UG, QD
     Route: 065
  2. FORTEO [Suspect]
     Active Substance: TERIPARATIDE
     Indication: OSTEOPOROSIS
     Dosage: 20 UG, DAILY (1/D)
     Dates: start: 201008
  3. FORTEO [Suspect]
     Active Substance: TERIPARATIDE
     Dosage: 20 UG, QD
  4. FORTEO [Suspect]
     Active Substance: TERIPARATIDE
     Dosage: 20 UG, QD
     Route: 065

REACTIONS (13)
  - Foot fracture [Recovering/Resolving]
  - Gait disturbance [Unknown]
  - Upper limb fracture [Unknown]
  - Injury associated with device [Recovered/Resolved]
  - Asthenia [Unknown]
  - Wrist fracture [Recovering/Resolving]
  - Skeletal injury [Recovering/Resolving]
  - Contusion [Recovered/Resolved]
  - Carpal tunnel syndrome [Unknown]
  - Trigger finger [Unknown]
  - Back pain [Unknown]
  - Fall [Unknown]
  - Injection site mass [Unknown]

NARRATIVE: CASE EVENT DATE: 201009
